FAERS Safety Report 8152393-X (Version None)
Quarter: 2012Q1

REPORT INFORMATION
  Report Type: 
  Country: None (occurrence: None)
  Receive Date: 20120221
  Receipt Date: 20120215
  Transmission Date: 20120608
  Serious: Yes (Life-Threatening, Hospitalization)
  Sender: FDA-Public Use
  Company Number: US-BAYER-2011-057078

PATIENT
  Age: 22 Year
  Sex: Female
  Weight: 55.329 kg

DRUGS (16)
  1. PERCOCET [Concomitant]
     Indication: PAIN
     Dosage: AS NEEDED
     Route: 048
  2. ZOFRAN [Concomitant]
     Dosage: 4 MG EVERY 8 HOURS X 10 TABS
     Route: 048
     Dates: start: 20090828
  3. YAZ [Suspect]
     Dosage: UNK
     Dates: end: 20090828
  4. ROCEPHIN [Concomitant]
     Dosage: 1 G, UNK
     Route: 042
     Dates: start: 20090828
  5. MEDROXYPROGESTERONE ACETATE [Concomitant]
     Indication: CONTRACEPTION
     Dosage: UNK
     Dates: start: 20110309, end: 20110606
  6. OXYCODONE HCL [Concomitant]
     Dosage: 7.5 MG, PRN
     Route: 048
  7. LORTAB [Concomitant]
     Dosage: 1 TAB EVERY 4 HOURS X 14 TABS
     Route: 048
     Dates: start: 20090828
  8. PROSED/DS [Concomitant]
     Dosage: 3 TIMES DAILY AS NEEDED
  9. DEPO-PROVERA [Concomitant]
  10. YASMIN [Suspect]
     Dosage: UNK
     Dates: start: 20090128
  11. TRAMADOL HCL [Concomitant]
     Dosage: AS NEEDED
     Route: 048
  12. AZITHROMYCIN [Concomitant]
     Dosage: 250 MG, UNK
     Dates: start: 20090828
  13. ELMIRON [Concomitant]
     Dosage: 100 MG, UNK
     Route: 048
  14. DROSPIRENONE AND ETHINYL ESTRADIOL [Suspect]
     Dosage: UNK
     Dates: start: 20090128, end: 20090930
  15. VALIUM [Concomitant]
     Dosage: 5 MG, HS X 5 NIGHTS
     Dates: start: 20090715
  16. DOXYCYCLINE [Concomitant]
     Dosage: 100 MG, TID
     Route: 048
     Dates: start: 20090828

REACTIONS (8)
  - GENERAL PHYSICAL HEALTH DETERIORATION [None]
  - DEEP VEIN THROMBOSIS [None]
  - INJURY [None]
  - PAIN [None]
  - EMOTIONAL DISTRESS [None]
  - ANXIETY [None]
  - THROMBOSIS [None]
  - ANHEDONIA [None]
